FAERS Safety Report 5202687-2 (Version None)
Quarter: 2007Q1

REPORT INFORMATION
  Report Type: 
  Country: None (occurrence: None)
  Receive Date: 20070109
  Receipt Date: 20061229
  Transmission Date: 20070707
  Serious: Yes (Hospitalization)
  Sender: FDA-Public Use
  Company Number: US-PFIZER INC-2007000460

PATIENT
  Sex: Female

DRUGS (2)
  1. AROMASIN [Suspect]
     Indication: BREAST CANCER
  2. TRIPTORELIN [Suspect]
     Indication: BREAST CANCER
     Dates: start: 20061018

REACTIONS (1)
  - ERYTHEMA MULTIFORME [None]
